FAERS Safety Report 5521064-8 (Version None)
Quarter: 2007Q4

REPORT INFORMATION
  Report Type: 
  Country: None (occurrence: None)
  Receive Date: 20071119
  Receipt Date: 20071106
  Transmission Date: 20080405
  Serious: Yes (Hospitalization)
  Sender: FDA-Public Use
  Company Number: US-JNJFOC-20071105599

PATIENT
  Sex: Female
  Weight: 137.44 kg

DRUGS (13)
  1. TRAMADOL HYDROCHLORIDE ER [Suspect]
     Indication: OSTEOARTHRITIS
     Route: 048
  2. MELOXICAM [Suspect]
     Route: 048
  3. MELOXICAM [Suspect]
     Indication: OSTEOARTHRITIS
     Route: 048
  4. FUROSEMIDE [Concomitant]
     Indication: HYPERTENSION
     Route: 048
  5. CLONIDINE [Concomitant]
     Route: 048
  6. METFORMIN HYDROCHLORIDE [Concomitant]
     Indication: DIABETES MELLITUS
     Route: 048
  7. MICARDIS HCT [Concomitant]
     Indication: HYPERTENSION
     Route: 048
  8. PEPCID AC [Concomitant]
     Indication: GASTROOESOPHAGEAL REFLUX DISEASE
     Route: 048
  9. BENADRYL [Concomitant]
     Indication: RHINITIS SEASONAL
     Route: 048
  10. POTASSIUM CHLORIDE [Concomitant]
     Route: 048
  11. IRON [Concomitant]
     Route: 048
  12. VITAMIN B-12 [Concomitant]
     Route: 048
  13. ASCORBIC ACID [Concomitant]
     Route: 048

REACTIONS (3)
  - CONDITION AGGRAVATED [None]
  - GASTROOESOPHAGEAL REFLUX DISEASE [None]
  - HIATUS HERNIA [None]
